FAERS Safety Report 8138626-4 (Version None)
Quarter: 2012Q1

REPORT INFORMATION
  Report Type: 
  Country: None (occurrence: None)
  Receive Date: 20120213
  Receipt Date: 20120130
  Transmission Date: 20120608
  Serious: Yes (Other)
  Sender: FDA-Public Use
  Company Number: 1182686

PATIENT
  Age: 28 Year
  Sex: Female

DRUGS (1)
  1. PIPERACILLIN AND TAZOBACTAM [Suspect]

REACTIONS (2)
  - ANAPHYLACTIC REACTION [None]
  - OCCUPATIONAL EXPOSURE TO DRUG [None]
